FAERS Safety Report 6171764-4 (Version None)
Quarter: 2009Q2

REPORT INFORMATION
  Report Type: 
  Country: None (occurrence: None)
  Receive Date: 20090429
  Receipt Date: 20090424
  Transmission Date: 20091009
  Serious: Yes (Hospitalization)
  Sender: FDA-Public Use
  Company Number: DE-AVENTIS-200810611DE

PATIENT
  Age: 70 Year
  Sex: Female
  Weight: 94 kg

DRUGS (4)
  1. DOCETAXEL [Suspect]
     Route: 042
     Dates: start: 20070412, end: 20070510
  2. GEMCITABINE HCL [Suspect]
     Route: 042
     Dates: start: 20070412, end: 20070510
  3. GRANISETRON HCL [Concomitant]
     Indication: ANTIEMETIC SUPPORTIVE CARE
     Route: 042
     Dates: start: 20070412, end: 20070510
  4. DEXAMETHASONE TAB [Concomitant]
     Indication: ANTIEMETIC SUPPORTIVE CARE
     Dosage: DOSE: 8 MG I.V. + 8 MG NOS
     Dates: start: 20070412, end: 20070510

REACTIONS (2)
  - HYPOVOLAEMIA [None]
  - RENAL FAILURE [None]
